FAERS Safety Report 20967639 (Version 1)
Quarter: 2022Q2

REPORT INFORMATION
  Report Type: Spontaneous
  Country: CH (occurrence: CH)
  Receive Date: 20220616
  Receipt Date: 20220616
  Transmission Date: 20220721
  Serious: Yes (Other)
  Sender: FDA-Public Use
  Company Number: None

PATIENT
  Age: 18 Year
  Sex: Male

DRUGS (9)
  1. LORAZEPAM [Suspect]
     Active Substance: LORAZEPAM
     Dosage: 7.5 MG, 1X/DAY
     Route: 048
     Dates: start: 20220405
  2. AKINETON [Suspect]
     Active Substance: BIPERIDEN HYDROCHLORIDE
     Dosage: 4 MG, 1X/DAY
     Route: 048
     Dates: start: 20220514, end: 20220519
  3. VALPROATE SODIUM [Suspect]
     Active Substance: VALPROATE SODIUM
     Dosage: 2000 MG, 1X/DAY
     Route: 048
     Dates: start: 20220416, end: 20220424
  4. VALPROATE SODIUM [Suspect]
     Active Substance: VALPROATE SODIUM
     Dosage: 2500 MG, 1X/DAY
     Route: 048
     Dates: start: 20220425, end: 20220502
  5. VALPROATE SODIUM [Suspect]
     Active Substance: VALPROATE SODIUM
     Dosage: 3000 MG, 1X/DAY
     Dates: start: 20220503, end: 202205
  6. VALPROATE SODIUM [Suspect]
     Active Substance: VALPROATE SODIUM
     Dosage: DOSE SUBSEQUENTLY REDUCED, DATE AND DOSAGE UNKNOWN
     Dates: start: 202205
  7. CLOZAPINE [Suspect]
     Active Substance: CLOZAPINE
     Dosage: 100 MG, 1X/DAY
     Route: 048
     Dates: start: 20220503, end: 20220515
  8. CLOZAPINE [Suspect]
     Active Substance: CLOZAPINE
     Dosage: 325 MG, 1X/DAY
     Dates: start: 20220516
  9. RIVOTRIL [Suspect]
     Active Substance: CLONAZEPAM
     Dosage: 3.5 MG, 1X/DAY
     Route: 048
     Dates: start: 20220405, end: 20220516

REACTIONS (2)
  - Photosensitivity reaction [Recovered/Resolved]
  - Pruritus [Recovered/Resolved]

NARRATIVE: CASE EVENT DATE: 20220517
